FAERS Safety Report 22159000 (Version 1)
Quarter: 2023Q1

REPORT INFORMATION
  Report Type: Other
  Country: US (occurrence: None)
  Receive Date: 20230331
  Receipt Date: 20230331
  Transmission Date: 20230418
  Serious: Yes (Other)
  Sender: FDA-Public Use
  Company Number: US-ROCHE-3318098

PATIENT
  Age: 58 Year
  Sex: Female

DRUGS (1)
  1. ESBRIET [Suspect]
     Active Substance: PIRFENIDONE
     Indication: Pneumonia
     Dosage: TAKE 1 TABLET BY MOUTH EVERY 8 HOURS
     Route: 048

REACTIONS (4)
  - Dyspnoea [Unknown]
  - Diabetes mellitus [Unknown]
  - Breast cancer [Unknown]
  - Off label use [Unknown]
